FAERS Safety Report 20256200 (Version 1)
Quarter: 2021Q4

REPORT INFORMATION
  Report Type: Spontaneous
  Country: US (occurrence: None)
  Receive Date: 20211229
  Receipt Date: 20211229
  Transmission Date: 20220303
  Serious: Yes (Life-Threatening, Other)
  Sender: FDA-Public Use
  Company Number: None

PATIENT
  Age: 63 Year
  Sex: Female
  Weight: 72.6 kg

DRUGS (1)
  1. BLINATUMOMAB [Suspect]
     Active Substance: BLINATUMOMAB
     Dosage: FREQUENCY : DAILY;?
     Route: 011

REACTIONS (4)
  - Subarachnoid haemorrhage [None]
  - Hypertension [None]
  - Klebsiella infection [None]
  - Urosepsis [None]

NARRATIVE: CASE EVENT DATE: 20211228
